FAERS Safety Report 4666831-8 (Version None)
Quarter: 2005Q2

REPORT INFORMATION
  Report Type: 
  Country: None (occurrence: None)
  Receive Date: 20050518
  Receipt Date: 20050129
  Transmission Date: 20051028
  Serious: Yes (Other)
  Sender: FDA-Public Use
  Company Number: 2005023415

PATIENT
  Age: 18 Year
  Sex: Female
  Weight: 50.3493 kg

DRUGS (2)
  1. DEPO-PROVERA [Suspect]
     Indication: MENORRHAGIA
     Dosage: 150 MG (150 MG FIRST INJ ) IM,  150 MG ( 150 MG MOST RECENT INJ ) IM
     Route: 030
     Dates: start: 20040917, end: 20040917
  2. DEPO-PROVERA [Suspect]
     Indication: MENORRHAGIA
     Dosage: 150 MG (150 MG FIRST INJ ) IM,  150 MG ( 150 MG MOST RECENT INJ ) IM
     Route: 030
     Dates: start: 20041227, end: 20041227

REACTIONS (5)
  - KIDNEY INFECTION [None]
  - METRORRHAGIA [None]
  - POST COITAL BLEEDING [None]
  - SMEAR CERVIX ABNORMAL [None]
  - WEIGHT DECREASED [None]
